FAERS Safety Report 21572806 (Version 1)
Quarter: 2022Q4

REPORT INFORMATION
  Report Type: Report from Study
  Country: HU (occurrence: HU)
  Receive Date: 20221109
  Receipt Date: 20221109
  Transmission Date: 20230113
  Serious: Yes (Other)
  Sender: FDA-Public Use
  Company Number: HU-MYLANLABS-2022M1122511

PATIENT
  Age: 35 Year
  Sex: Female

DRUGS (3)
  1. LAMOTRIGINE [Suspect]
     Active Substance: LAMOTRIGINE
     Indication: Partial seizures
     Dosage: UNK
     Route: 065
  2. CLONAZEPAM [Suspect]
     Active Substance: CLONAZEPAM
     Indication: Partial seizures
     Dosage: UNK
     Route: 065
  3. OXCARBAZEPINE [Suspect]
     Active Substance: OXCARBAZEPINE
     Indication: Partial seizures
     Dosage: UNK
     Route: 065

REACTIONS (1)
  - Drug ineffective [Unknown]
